FAERS Safety Report 10889372 (Version 2)
Quarter: 2015Q4

REPORT INFORMATION
  Report Type: Spontaneous
  Country: FR (occurrence: FR)
  Receive Date: 20150305
  Receipt Date: 20151026
  Transmission Date: 20160304
  Serious: Yes (Hospitalization, Other)
  Sender: FDA-Public Use
  Company Number: FR-PFIZER INC-2015067094

PATIENT
  Age: 4 Year
  Sex: Female
  Weight: 15 kg

DRUGS (3)
  1. VALIUM [Concomitant]
     Active Substance: DIAZEPAM
     Indication: EPILEPSY
     Dosage: 0.4 MG/KG, UNK
     Route: 054
  2. PRODILANTIN [Suspect]
     Active Substance: FOSPHENYTOIN SODIUM
     Indication: SEIZURE
     Dosage: 375 MG, A LOADING DOSE AT 3:30 PM OVER 30 MINUTES
     Route: 042
  3. PRODILANTIN [Suspect]
     Active Substance: FOSPHENYTOIN SODIUM
     Indication: TONIC CONVULSION

REACTIONS (4)
  - Toxicity to various agents [Recovered/Resolved]
  - Product use issue [Unknown]
  - Product label confusion [Recovered/Resolved]
  - Overdose [Recovered/Resolved]
